FAERS Safety Report 8807955 (Version 2)
Quarter: 2014Q3

REPORT INFORMATION
  Report Type: Report from Study
  Country: US (occurrence: US)
  Receive Date: 20120925
  Receipt Date: 20140908
  Transmission Date: 20150326
  Serious: Yes (Hospitalization, Other)
  Sender: FDA-Public Use
  Company Number: US-ROCHE-1127629

PATIENT
  Sex: Female
  Weight: 96 kg

DRUGS (13)
  1. ZOMETA [Concomitant]
     Active Substance: ZOLEDRONIC ACID
  2. AVASTIN [Suspect]
     Active Substance: BEVACIZUMAB
     Indication: BREAST CANCER FEMALE
     Dosage: LABELLED DOSING
     Route: 065
  3. GEMZAR [Concomitant]
     Active Substance: GEMCITABINE HYDROCHLORIDE
  4. TAXOTERE [Concomitant]
     Active Substance: DOCETAXEL
  5. ARIMIDEX [Concomitant]
     Active Substance: ANASTROZOLE
  6. TAMOXIFENE [Concomitant]
     Active Substance: TAMOXIFEN
  7. MEGACE [Concomitant]
     Active Substance: MEGESTROL ACETATE
  8. FASLODEX [Concomitant]
     Active Substance: FULVESTRANT
  9. AVASTIN [Suspect]
     Active Substance: BEVACIZUMAB
     Indication: BREAST CANCER METASTATIC
     Route: 065
  10. DOXIL (ISRAEL) [Concomitant]
  11. AROMASIN [Concomitant]
     Active Substance: EXEMESTANE
  12. NAVELBINE [Concomitant]
     Active Substance: VINORELBINE TARTRATE
     Route: 065
     Dates: start: 20060128
  13. FEMARA [Concomitant]
     Active Substance: LETROZOLE

REACTIONS (5)
  - Metastases to bone [Unknown]
  - Disease progression [Unknown]
  - Neuropathy peripheral [Unknown]
  - Off label use [Unknown]
  - Malaise [Unknown]
